FAERS Safety Report 6082858-6 (Version None)
Quarter: 2009Q1

REPORT INFORMATION
  Report Type: 
  Country: None (occurrence: None)
  Receive Date: 20090218
  Receipt Date: 20090211
  Transmission Date: 20090719
  Serious: Yes (Hospitalization)
  Sender: FDA-Public Use
  Company Number: AU-GILEAD-2009-0020296

PATIENT
  Sex: Female
  Weight: 59.3 kg

DRUGS (5)
  1. AMBRISENTAN [Suspect]
     Indication: PULMONARY ARTERIAL HYPERTENSION
     Dates: start: 20080626
  2. AMBRISENTAN [Suspect]
     Dates: start: 20080109, end: 20080625
  3. ILOPROST [Concomitant]
     Indication: PULMONARY HYPERTENSION
     Route: 055
  4. SILDENAFIL CITRATE [Concomitant]
     Indication: PULMONARY HYPERTENSION
  5. OXYGEN [Concomitant]
     Indication: PULMONARY HYPERTENSION

REACTIONS (1)
  - DIZZINESS [None]
